FAERS Safety Report 6263538-0 (Version None)
Quarter: 2009Q3

REPORT INFORMATION
  Report Type: 
  Country: None (occurrence: None)
  Receive Date: 20090710
  Receipt Date: 20090413
  Transmission Date: 20100115
  Serious: Yes (Other)
  Sender: FDA-Public Use
  Company Number: A0778438A

PATIENT
  Age: 68 Year
  Sex: Female

DRUGS (6)
  1. TYKERB [Suspect]
     Indication: BREAST CANCER
     Dosage: 1250MG PER DAY
     Route: 048
     Dates: start: 20090316, end: 20090331
  2. XELODA [Concomitant]
  3. LISINOPRIL [Concomitant]
  4. CARVEDILOL [Concomitant]
  5. HYDROCHLOROTHIAZIDE [Concomitant]
  6. IMODIUM [Concomitant]

REACTIONS (1)
  - HEPATIC ENZYME INCREASED [None]
